FAERS Safety Report 9234101 (Version 1)
Quarter: 2013Q2

REPORT INFORMATION
  Report Type: Spontaneous
  Country: IT (occurrence: IT)
  Receive Date: 20130416
  Receipt Date: 20130416
  Transmission Date: 20140414
  Serious: Yes (Life-Threatening, Hospitalization, Other)
  Sender: FDA-Public Use
  Company Number: IT-PFIZER INC-2013117405

PATIENT
  Age: 15 Year
  Sex: Female

DRUGS (3)
  1. ATENOLOL [Suspect]
     Indication: POISONING DELIBERATE
     Dosage: 100 MG, SINGLE
     Route: 048
     Dates: start: 20130103, end: 20130103
  2. BLOPRESID [Suspect]
     Indication: POISONING DELIBERATE
     Dosage: 1 DF, SINGLE
     Route: 048
     Dates: start: 20130103, end: 20130103
  3. LENDORMIN [Suspect]
     Indication: POISONING DELIBERATE
     Dosage: 0.25 MG, UNK
     Route: 048
     Dates: start: 20130103, end: 20130103

REACTIONS (6)
  - Suicide attempt [Unknown]
  - Poisoning deliberate [Unknown]
  - Sopor [Recovered/Resolved]
  - Drug abuse [Unknown]
  - Nausea [Recovered/Resolved]
  - Vomiting [Recovered/Resolved]
